FAERS Safety Report 24396716 (Version 1)
Quarter: 2024Q4

REPORT INFORMATION
  Report Type: Spontaneous
  Country: CO (occurrence: CO)
  Receive Date: 20241004
  Receipt Date: 20241004
  Transmission Date: 20250115
  Serious: Yes (Other)
  Sender: INCYTE
  Company Number: CO-002147023-NVSC2024CO192558

PATIENT

DRUGS (1)
  1. RUXOLITINIB [Suspect]
     Active Substance: RUXOLITINIB
     Indication: Myeloproliferative neoplasm
     Dosage: 20 MG, BID
     Route: 065

REACTIONS (4)
  - Basal cell carcinoma [Unknown]
  - Neuroendocrine carcinoma of the skin [Unknown]
  - Product use in unapproved indication [Unknown]
  - Squamous cell carcinoma [Unknown]
